FAERS Safety Report 24149831 (Version 2)
Quarter: 2024Q3

REPORT INFORMATION
  Report Type: Spontaneous
  Country: US (occurrence: US)
  Receive Date: 20240730
  Receipt Date: 20240815
  Transmission Date: 20241017
  Serious: Yes (Other)
  Sender: GLENMARK
  Company Number: US-GLENMARK PHARMACEUTICALS-2024GMK092667

PATIENT

DRUGS (1)
  1. TERIFLUNOMIDE [Suspect]
     Active Substance: TERIFLUNOMIDE
     Indication: Relapsing-remitting multiple sclerosis
     Dosage: 14 MILLIGRAM, QD
     Route: 065
     Dates: start: 202309

REACTIONS (4)
  - Spinal cord disorder [Unknown]
  - Condition aggravated [Unknown]
  - Product substitution issue [Unknown]
  - Manufacturing materials issue [Unknown]

NARRATIVE: CASE EVENT DATE: 20231101
